FAERS Safety Report 19031103 (Version 1)
Quarter: 2021Q1

REPORT INFORMATION
  Report Type: Spontaneous
  Country: US (occurrence: US)
  Receive Date: 20210319
  Receipt Date: 20210319
  Transmission Date: 20210420
  Serious: Yes (Death)
  Sender: FDA-Public Use
  Company Number: None

PATIENT
  Age: 89 Year
  Sex: Female

DRUGS (8)
  1. MIRTZAPINE 30 MG [Concomitant]
     Dates: start: 20190802, end: 20210318
  2. HYDRALAZINE 100 MG [Concomitant]
     Dates: start: 20210310, end: 20210318
  3. MEMANTINE 10 MG [Concomitant]
     Dates: start: 20181215, end: 20210318
  4. METOPROLOL TARTRATE 100 MG [Concomitant]
     Active Substance: METOPROLOL TARTRATE
     Dates: start: 20190610, end: 20210318
  5. LISINOPRIL 20 MG [Concomitant]
     Active Substance: LISINOPRIL
     Dates: start: 20201207, end: 20210318
  6. ALPRAZOLAM 0.5 MG [Concomitant]
     Active Substance: ALPRAZOLAM
     Dates: start: 20190425, end: 20210318
  7. NUPLAZID [Suspect]
     Active Substance: PIMAVANSERIN TARTRATE
     Indication: HALLUCINATION
     Route: 048
     Dates: start: 20200922, end: 20210318
  8. RIVASTIGINE 13.3 MG/24H PATCH [Concomitant]
     Dates: start: 20190227, end: 20210318

REACTIONS (1)
  - Death [None]

NARRATIVE: CASE EVENT DATE: 20210318
